FAERS Safety Report 8113437-4 (Version None)
Quarter: 2012Q1

REPORT INFORMATION
  Report Type: 
  Country: None (occurrence: None)
  Receive Date: 20120203
  Receipt Date: 20120202
  Transmission Date: 20120608
  Serious: Yes (Death)
  Sender: FDA-Public Use
  Company Number: PHHY2012NL008746

PATIENT
  Sex: Female

DRUGS (3)
  1. CHOLESTIN [Concomitant]
  2. PULMOZYME [Concomitant]
  3. TOBI [Suspect]
     Indication: CYSTIC FIBROSIS

REACTIONS (1)
  - DEATH [None]
